FAERS Safety Report 5482080-8 (Version None)
Quarter: 2007Q4

REPORT INFORMATION
  Report Type: 
  Country: None (occurrence: None)
  Receive Date: 20071005
  Receipt Date: 20070920
  Transmission Date: 20080405
  Serious: Yes (Death, Hospitalization)
  Sender: FDA-Public Use
  Company Number: S07-SWI-05280-01

PATIENT
  Age: 60 Year
  Sex: Male

DRUGS (5)
  1. CITALOPRAM HYDROBROMIDE [Suspect]
     Dosage: 20 MG QD PO
     Route: 048
     Dates: start: 20060201, end: 20070113
  2. RISPERDAL [Concomitant]
  3. EFFEXOR [Concomitant]
  4. AKINETON [Concomitant]
  5. MARCUMAR [Concomitant]

REACTIONS (5)
  - ASPHYXIA [None]
  - CEREBRAL ATROPHY [None]
  - COMPLETED SUICIDE [None]
  - MENTAL DISORDER [None]
  - PULMONARY EMBOLISM [None]
